FAERS Safety Report 25869943 (Version 1)
Quarter: 2025Q4

REPORT INFORMATION
  Report Type: Report from Study
  Country: CA (occurrence: CA)
  Receive Date: 20251001
  Receipt Date: 20251001
  Transmission Date: 20260118
  Serious: Yes (Hospitalization)
  Sender: ABBVIE
  Company Number: CA-ABBVIE-6482377

PATIENT
  Sex: Male

DRUGS (1)
  1. SKYRIZI [Suspect]
     Active Substance: RISANKIZUMAB-RZAA
     Indication: Colitis ulcerative
     Dosage: FORM STRENGTH 60MG/10ML, 2 VIALS INTRAVENOUSLY AT WEEK 0, WEEK 4,AND WEEK 8
     Route: 042

REACTIONS (4)
  - Diarrhoea [Recovered/Resolved]
  - Fall [Unknown]
  - Dehydration [Unknown]
  - Arthralgia [Unknown]
